FAERS Safety Report 4996307-X (Version None)
Quarter: 2006Q2

REPORT INFORMATION
  Report Type: 
  Country: None (occurrence: None)
  Receive Date: 20060505
  Receipt Date: 20060426
  Transmission Date: 20061013
  Serious: Yes (Hospitalization)
  Sender: FDA-Public Use
  Company Number: MEDI-0004502

PATIENT
  Age: 10 Month

DRUGS (2)
  1. SYNAGIS [Suspect]
     Indication: ANTIVIRAL PROPHYLAXIS
     Dosage: 1 IN 20 D, INTRAMUSCULAR
     Route: 030
     Dates: start: 20060103, end: 20060103
  2. SYNAGIS [Suspect]
     Indication: ANTIVIRAL PROPHYLAXIS
     Dosage: 1 IN 20 D, INTRAMUSCULAR
     Route: 030
     Dates: start: 20060221, end: 20060221

REACTIONS (3)
  - BRONCHITIS [None]
  - GASTROENTERITIS [None]
  - INFLUENZA [None]
